FAERS Safety Report 4737911-3 (Version None)
Quarter: 2005Q3

REPORT INFORMATION
  Report Type: 
  Country: None (occurrence: None)
  Receive Date: 20050809
  Receipt Date: 20050729
  Transmission Date: 20060218
  Serious: Yes (Other)
  Sender: FDA-Public Use
  Company Number: US-JNJFOC-20050703817

PATIENT
  Sex: Female
  Weight: 63.5 kg

DRUGS (6)
  1. REMICADE [Suspect]
     Indication: RHEUMATOID ARTHRITIS
     Route: 042
  2. METHOTREXATE [Concomitant]
     Indication: RHEUMATOID ARTHRITIS
  3. FOLIC ACID [Concomitant]
  4. SYNTHROID [Concomitant]
     Indication: HYPOTHYROIDISM
  5. ZOLOFT [Concomitant]
  6. TYLENOL (CAPLET) [Concomitant]
     Indication: PAIN

REACTIONS (2)
  - NON-HODGKIN'S LYMPHOMA [None]
  - PHARYNGOLARYNGEAL PAIN [None]
